FAERS Safety Report 4819393-6 (Version None)
Quarter: 2005Q4

REPORT INFORMATION
  Report Type: 
  Country: None (occurrence: None)
  Receive Date: 20051012
  Receipt Date: 20050613
  Transmission Date: 20060501
  Serious: Yes (Other)
  Sender: FDA-Public Use
  Company Number: A03200501762

PATIENT
  Age: 74 Year
  Sex: Male
  Weight: 88.905 kg

DRUGS (4)
  1. UROXATRAL [Suspect]
     Indication: POLLAKIURIA
     Dosage: 10 MG ONCE - ORAL
     Route: 048
     Dates: start: 20050607, end: 20050607
  2. UROXATRAL [Suspect]
     Indication: PROSTATIC DISORDER
     Dosage: 10 MG ONCE - ORAL
     Route: 048
     Dates: start: 20050607, end: 20050607
  3. METOPROLOL [Concomitant]
  4. EZETIMIBE [Concomitant]

REACTIONS (3)
  - DIZZINESS [None]
  - LOSS OF CONSCIOUSNESS [None]
  - VISION BLURRED [None]
